FAERS Safety Report 6582544-X (Version None)
Quarter: 2010Q1

REPORT INFORMATION
  Report Type: 
  Country: None (occurrence: None)
  Receive Date: 20100216
  Receipt Date: 20100205
  Transmission Date: 20100710
  Serious: No
  Sender: FDA-Public Use
  Company Number: US-B.I. PHARMACEUTICALS,INC./RIDGEFIELD-2010-BP-01558BP

PATIENT
  Sex: Female

DRUGS (3)
  1. SPIRIVA [Suspect]
     Indication: CHRONIC OBSTRUCTIVE PULMONARY DISEASE
     Dosage: 18 MCG
     Route: 055
     Dates: start: 20090728, end: 20090802
  2. DIOVAN [Concomitant]
     Indication: HYPERTENSION
     Dosage: 80 MG
  3. INDERAL [Concomitant]
     Indication: VENTRICULAR TACHYCARDIA
     Dosage: 10 MG
     Route: 048
     Dates: start: 19900101

REACTIONS (3)
  - DIZZINESS [None]
  - MALAISE [None]
  - PAIN [None]
